FAERS Safety Report 12851684 (Version 7)
Quarter: 2017Q1

REPORT INFORMATION
  Report Type: Report from Study
  Country: DE (occurrence: DE)
  Receive Date: 20161017
  Receipt Date: 20170328
  Transmission Date: 20170428
  Serious: Yes (Hospitalization)
  Sender: FDA-Public Use
  Company Number: DE-ROCHE-1839583

PATIENT
  Age: 80 Year
  Sex: Male
  Weight: 55 kg

DRUGS (17)
  1. PACLITAXEL. [Suspect]
     Active Substance: PACLITAXEL
     Indication: NON-SMALL CELL LUNG CANCER STAGE IV
     Dosage: DATE OF MOST RECENT DOSE PRIOR TO THE EVENT ONSET: 14/SEP/2016 OF 312 MG?DOSE PER PROTOCOL
     Route: 042
     Dates: start: 20160801
  2. VITAMIN B COMPLEX [Concomitant]
     Active Substance: CYANOCOBALAMIN\DEXPANTHENOL\NIACINAMIDE\PYRIDOXINE HYDROCHLORIDE\RIBOFLAVIN 5^-PHOSPHATE SODIUM\THIAMINE HYDROCHLORIDE\VITAMIN B COMPLEX
     Indication: PROPHYLAXIS
     Route: 065
     Dates: start: 2011
  3. GRANISETRON [Concomitant]
     Active Substance: GRANISETRON
     Route: 065
     Dates: start: 20160801
  4. BEVACIZUMAB [Suspect]
     Active Substance: BEVACIZUMAB
     Indication: NON-SMALL CELL LUNG CANCER STAGE IV
     Dosage: DATE OF MOST RECENT DOSE PRIOR TO THE EVENT ONSET: 14/SEP/2016 OF 825 MG?DOSE PER PROTOCOL
     Route: 042
     Dates: start: 20160801
  5. CLEMASTIN [Concomitant]
     Active Substance: CLEMASTINE
     Route: 065
     Dates: start: 20160801
  6. RANITIDIN [Concomitant]
     Active Substance: RANITIDINE HYDROCHLORIDE
     Route: 065
     Dates: start: 20160801
  7. PARACETAMOL [Concomitant]
     Active Substance: ACETAMINOPHEN
     Indication: INFLUENZA LIKE ILLNESS
     Route: 065
     Dates: start: 20160803
  8. CARBOPLATIN. [Suspect]
     Active Substance: CARBOPLATIN
     Indication: NON-SMALL CELL LUNG CANCER STAGE IV
     Dosage: DATE OF MOST RECENT DOSE PRIOR TO THE EVENT ONSET: 14/SEP/2016 OF 456 MG?INITIAL TARGET AREA UNDER T
     Route: 042
     Dates: start: 20160801
  9. ASPIRIN. [Concomitant]
     Active Substance: ASPIRIN
     Indication: PERIPHERAL ARTERIAL OCCLUSIVE DISEASE
     Route: 065
     Dates: start: 201510, end: 20161009
  10. SIMVASTATIN. [Concomitant]
     Active Substance: SIMVASTATIN
     Indication: ARTERIOSCLEROSIS CORONARY ARTERY
     Route: 065
     Dates: start: 201510
  11. RAMIPRIL. [Concomitant]
     Active Substance: RAMIPRIL
     Dosage: INTERRUPTED
     Route: 065
  12. CLEXANE [Concomitant]
     Active Substance: ENOXAPARIN SODIUM
     Dosage: THROMBOSIS PROPHYLAXIS
     Route: 065
     Dates: start: 20161009
  13. RINGER SOLUTION [Concomitant]
     Route: 065
     Dates: start: 20160801
  14. DEXAMETHASON [Concomitant]
     Active Substance: DEXAMETHASONE
     Route: 065
     Dates: start: 20160801
  15. PANTOZOL [Concomitant]
     Active Substance: PANTOPRAZOLE SODIUM
     Route: 065
  16. IBUPROFEN. [Concomitant]
     Active Substance: IBUPROFEN
     Indication: CHEST PAIN
     Route: 065
     Dates: start: 201603
  17. CLEXANE [Concomitant]
     Active Substance: ENOXAPARIN SODIUM
     Indication: THROMBOSIS PROPHYLAXIS
     Dosage: AT NIGHT
     Route: 065

REACTIONS (1)
  - Aphasia [Not Recovered/Not Resolved]

NARRATIVE: CASE EVENT DATE: 20160930
